FAERS Safety Report 8563803-8 (Version None)
Quarter: 2012Q3

REPORT INFORMATION
  Report Type: 
  Country: None (occurrence: None)
  Receive Date: 20120803
  Receipt Date: 20120726
  Transmission Date: 20120928
  Serious: Yes (Other)
  Sender: FDA-Public Use
  Company Number: FR-009507513-1208FRA000204

PATIENT

DRUGS (2)
  1. LAMICTAL [Concomitant]
     Indication: EPILEPSY
  2. IMPLANON [Suspect]
     Indication: PRODUCT USED FOR UNKNOWN INDICATION
     Dosage: 1 DF, UNK
     Dates: start: 20081005, end: 20111005

REACTIONS (1)
  - CONDITION AGGRAVATED [None]
